FAERS Safety Report 19477698 (Version 1)
Quarter: 2021Q2

REPORT INFORMATION
  Report Type: Spontaneous
  Country: US (occurrence: US)
  Receive Date: 20210629
  Receipt Date: 20210629
  Transmission Date: 20210717
  Serious: No
  Sender: FDA-Public Use
  Company Number: None

PATIENT
  Sex: Male

DRUGS (2)
  1. MR. CBD OXYGENATED HEMP OIL [Suspect]
     Active Substance: CANNABIDIOL\HERBALS
     Indication: PRODUCT USED FOR UNKNOWN INDICATION
     Dosage: ?          QUANTITY:1 DROP(S);?
     Route: 048
  2. LIFE EXTENSION BIO COLLAGEN  AMONG OTHERS [Suspect]
     Active Substance: CHICKEN CARTILAGE\DIETARY SIPPLEMENT

REACTIONS (1)
  - Product storage error [None]

NARRATIVE: CASE EVENT DATE: 20210404
